FAERS Safety Report 9972794 (Version 1)
Quarter: 2014Q1

REPORT INFORMATION
  Report Type: Spontaneous
  Country: US (occurrence: US)
  Receive Date: 20140306
  Receipt Date: 20140306
  Transmission Date: 20141002
  Serious: No
  Sender: FDA-Public Use
  Company Number: US-PFIZER INC-2014060129

PATIENT
  Age: 74 Year
  Sex: Male
  Weight: 90.7 kg

DRUGS (1)
  1. ADVIL [Suspect]
     Indication: PAIN IN EXTREMITY
     Dosage: 200 MG, 2X/DAY
     Route: 048

REACTIONS (4)
  - Poor quality drug administered [Unknown]
  - Cough [Not Recovered/Not Resolved]
  - Nasopharyngitis [Not Recovered/Not Resolved]
  - Product coating issue [Unknown]
